FAERS Safety Report 6898940-7 (Version None)
Quarter: 2010Q3

REPORT INFORMATION
  Report Type: 
  Country: None (occurrence: None)
  Receive Date: 20100802
  Receipt Date: 20071211
  Transmission Date: 20110219
  Serious: No
  Sender: FDA-Public Use
  Company Number: US-PFIZER INC-2007104793

PATIENT
  Sex: Male
  Weight: 72.727 kg

DRUGS (6)
  1. LYRICA [Suspect]
     Indication: NEUROPATHY PERIPHERAL
     Route: 048
     Dates: start: 20070101
  2. DILAUDID [Concomitant]
  3. VALIUM [Concomitant]
  4. ACETYLSALICYLIC ACID SRT [Concomitant]
  5. ACIPHEX [Concomitant]
  6. LIPITOR [Concomitant]

REACTIONS (3)
  - ALBUMIN URINE PRESENT [None]
  - PROTEINURIA [None]
  - URINE ANALYSIS ABNORMAL [None]
